FAERS Safety Report 16030505 (Version 2)
Quarter: 2019Q1

REPORT INFORMATION
  Report Type: Spontaneous
  Country: US (occurrence: US)
  Receive Date: 20190304
  Receipt Date: 20190308
  Transmission Date: 20190418
  Serious: Yes (Hospitalization)
  Sender: FDA-Public Use
  Company Number: US-BAYER-2019-042512

PATIENT
  Age: 54 Year
  Sex: Male

DRUGS (1)
  1. GADAVIST [Suspect]
     Active Substance: GADOBUTROL
     Indication: NUCLEAR MAGNETIC RESONANCE IMAGING
     Dosage: 7 ML, ONCE
     Route: 042
     Dates: start: 20190225, end: 20190225

REACTIONS (5)
  - Tremor [None]
  - Hyperhidrosis [None]
  - Consciousness fluctuating [None]
  - Seizure [None]
  - Disorientation [None]
